FAERS Safety Report 23045369 (Version 1)
Quarter: 2023Q4

REPORT INFORMATION
  Report Type: Report from Study
  Country: FR (occurrence: FR)
  Receive Date: 20231009
  Receipt Date: 20231009
  Transmission Date: 20240110
  Serious: Yes (Other)
  Sender: FDA-Public Use
  Company Number: FR-Accord-366265

PATIENT
  Age: 59 Year
  Sex: Male

DRUGS (4)
  1. FLUOROURACIL [Suspect]
     Active Substance: FLUOROURACIL
     Indication: Neoplasm malignant
     Dosage: UNK
     Route: 065
     Dates: start: 20201120
  2. PEGFILGRASTIM [Suspect]
     Active Substance: PEGFILGRASTIM
     Indication: Prophylaxis
     Dosage: 6 MILLIGRAM
     Route: 058
  3. OXALIPLATIN [Suspect]
     Active Substance: OXALIPLATIN
     Indication: Neoplasm malignant
     Dosage: UNK
     Route: 065
     Dates: start: 20201120
  4. DOCETAXEL [Suspect]
     Active Substance: DOCETAXEL
     Indication: Neoplasm malignant
     Dosage: UNK
     Route: 065
     Dates: start: 20201120

REACTIONS (14)
  - Neuropathy peripheral [Unknown]
  - Hypokalaemia [Unknown]
  - Thrombocytosis [Unknown]
  - Blood lactate dehydrogenase increased [Unknown]
  - Abdominal pain upper [Unknown]
  - Anaemia [Unknown]
  - Blood alkaline phosphatase increased [Unknown]
  - Aspartate aminotransferase increased [Unknown]
  - Leukocytosis [Unknown]
  - Constipation [Unknown]
  - Hypoalbuminaemia [Unknown]
  - Lymphopenia [Unknown]
  - Nausea [Unknown]
  - Diarrhoea [Unknown]
